FAERS Safety Report 8144811-8 (Version None)
Quarter: 2012Q1

REPORT INFORMATION
  Report Type: 
  Country: None (occurrence: None)
  Receive Date: 20120217
  Receipt Date: 20120208
  Transmission Date: 20120608
  Serious: Yes (Other)
  Sender: FDA-Public Use
  Company Number: DE-JNJFOC-20120205611

PATIENT
  Age: 28 Year
  Sex: Female
  Weight: 68 kg

DRUGS (5)
  1. REMICADE [Suspect]
     Indication: JUVENILE ARTHRITIS
     Route: 042
     Dates: start: 20070703, end: 20120206
  2. FOLIC ACID [Concomitant]
     Indication: JUVENILE ARTHRITIS
     Dates: start: 20060101
  3. CONTRACEPTIVES [Concomitant]
  4. METHOTREXATE SODIUM [Concomitant]
     Indication: JUVENILE ARTHRITIS
     Dates: start: 20060101
  5. PREDNISOLONE [Concomitant]
     Indication: JUVENILE ARTHRITIS
     Dates: start: 20060101

REACTIONS (1)
  - CERVIX CARCINOMA [None]
